FAERS Safety Report 12846944 (Version 1)
Quarter: 2016Q4

REPORT INFORMATION
  Report Type: Spontaneous
  Country: VE (occurrence: VE)
  Receive Date: 20161014
  Receipt Date: 20161014
  Transmission Date: 20170207
  Serious: Yes (Other)
  Sender: FDA-Public Use
  Company Number: PHHY2016VE139720

PATIENT
  Sex: Female

DRUGS (5)
  1. PARMITAL [Concomitant]
     Indication: PARKINSON^S DISEASE
     Dosage: 1 MG, QD
     Route: 065
  2. ASAPROL [Concomitant]
     Active Substance: ASPIRIN
     Indication: CARDIAC DISORDER
     Dosage: 80 MG, QD
     Route: 065
  3. TRILEPTAL [Suspect]
     Active Substance: OXCARBAZEPINE
     Dosage: 1800 MG, QD
     Route: 048
  4. TRILEPTAL [Suspect]
     Active Substance: OXCARBAZEPINE
     Indication: SEIZURE
     Dosage: 600 MG, UNK
     Route: 065
  5. SOMAZINA [Concomitant]
     Active Substance: CITICOLINE
     Indication: BRAIN HYPOXIA
     Dosage: 1000 MG, QD
     Route: 065

REACTIONS (5)
  - Motor dysfunction [Recovered/Resolved]
  - Abasia [Recovered/Resolved]
  - Feeling abnormal [Recovered/Resolved]
  - Somnolence [Recovered/Resolved]
  - Seizure [Recovered/Resolved]
